APPROVED DRUG PRODUCT: OXYCODONE AND ACETAMINOPHEN
Active Ingredient: ACETAMINOPHEN; OXYCODONE HYDROCHLORIDE
Strength: 300MG;2.5MG
Dosage Form/Route: TABLET;ORAL
Application: A040608 | Product #001
Applicant: MIKART LLC
Approved: Dec 30, 2005 | RLD: No | RS: Yes | Type: RX